FAERS Safety Report 23626966 (Version 1)
Quarter: 2024Q1

REPORT INFORMATION
  Report Type: Report from Study
  Country: FR (occurrence: FR)
  Receive Date: 20240313
  Receipt Date: 20240313
  Transmission Date: 20240409
  Serious: No
  Sender: FDA-Public Use
  Company Number: FR-SPRINGWORKS THERAPEUTICS-SW-000958

PATIENT
  Age: 41 Year
  Sex: Female
  Weight: 70 kg

DRUGS (2)
  1. NIROGACESTAT [Suspect]
     Active Substance: NIROGACESTAT
     Indication: Desmoid tumour
     Dosage: 150 MILLIGRAM, BID
     Route: 048
     Dates: start: 20230313, end: 20230316
  2. NIROGACESTAT [Suspect]
     Active Substance: NIROGACESTAT
     Dosage: 100 MILLIGRAM, BID
     Route: 048
     Dates: end: 20230320

REACTIONS (2)
  - Hypersensitivity [Recovered/Resolved]
  - Hypersensitivity [Unknown]

NARRATIVE: CASE EVENT DATE: 20230313
